FAERS Safety Report 21777472 (Version 1)
Quarter: 2022Q4

REPORT INFORMATION
  Report Type: Spontaneous
  Country: US (occurrence: US)
  Receive Date: 20221226
  Receipt Date: 20221226
  Transmission Date: 20230112
  Serious: No
  Sender: FDA-Public Use
  Company Number: US-SA-SAC20221221000460

PATIENT
  Sex: Male

DRUGS (1)
  1. DUPIXENT [Suspect]
     Active Substance: DUPILUMAB
     Dosage: 300 MG OTHER
     Route: 058

REACTIONS (8)
  - Skin haemorrhage [Unknown]
  - Nasal congestion [Unknown]
  - Influenza like illness [Unknown]
  - Dysuria [Unknown]
  - Insomnia [Unknown]
  - Pruritus [Unknown]
  - Therapeutic response decreased [Unknown]
  - Extra dose administered [Unknown]
